FAERS Safety Report 5818457-8 (Version None)
Quarter: 2008Q3

REPORT INFORMATION
  Report Type: 
  Country: None (occurrence: None)
  Receive Date: 20080722
  Receipt Date: 20080708
  Transmission Date: 20090109
  Serious: Yes (Other)
  Sender: FDA-Public Use
  Company Number: IT-ELI_LILLY_AND_COMPANY-IT200806002627

PATIENT
  Sex: Male
  Weight: 83 kg

DRUGS (5)
  1. HUMATROPE [Suspect]
     Indication: GROWTH HORMONE DEFICIENCY
     Dosage: 0.6 MG, DAILY (1/D)
     Route: 058
     Dates: start: 20010924, end: 20080610
  2. CORTISONE ACETATE [Concomitant]
     Indication: ADRENAL INSUFFICIENCY
     Dosage: 37.5 MG, UNKNOWN
     Route: 048
     Dates: start: 20000916
  3. LEVOTHYROXINE SODIUM [Concomitant]
     Indication: SECONDARY HYPOTHYROIDISM
     Dosage: 114.3 UG, UNKNOWN
     Route: 048
     Dates: start: 20000916
  4. TESTOSTERONE ENANTHATE [Concomitant]
     Indication: SECONDARY HYPOGONADISM
     Dosage: 250 MG, UNKNOWN
     Route: 030
     Dates: start: 20000922
  5. DESMOPRESSIN ACETATE [Concomitant]
     Indication: DIABETES INSIPIDUS
     Dosage: 0.4 MG, UNKNOWN
     Route: 048
     Dates: start: 20010313

REACTIONS (1)
  - MALIGNANT MELANOMA [None]
